FAERS Safety Report 7973775-2 (Version None)
Quarter: 2011Q4

REPORT INFORMATION
  Report Type: 
  Country: None (occurrence: None)
  Receive Date: 20111213
  Receipt Date: 20111201
  Transmission Date: 20120403
  Serious: Yes (Hospitalization, Disabling)
  Sender: FDA-Public Use
  Company Number: BR-ASTRAZENECA-2011SE59809

PATIENT
  Sex: Female

DRUGS (5)
  1. NEXIUM [Suspect]
     Indication: GASTRITIS
     Route: 048
     Dates: start: 20110901, end: 20110101
  2. NEXIUM [Suspect]
     Route: 048
     Dates: start: 20111123
  3. PROPRANOLOL [Suspect]
     Indication: HYPERTENSION
     Route: 048
     Dates: start: 20111101
  4. NEXIUM [Suspect]
     Indication: ABDOMINAL PAIN UPPER
     Route: 048
     Dates: start: 20110901, end: 20110101
  5. NEXIUM [Suspect]
     Route: 048
     Dates: start: 20111123

REACTIONS (12)
  - PANIC DISORDER [None]
  - HEADACHE [None]
  - ABDOMINAL PAIN [None]
  - DRUG DOSE OMISSION [None]
  - GASTRITIS [None]
  - BLOOD PRESSURE INCREASED [None]
  - DIARRHOEA [None]
  - CONFUSIONAL STATE [None]
  - DRUG INEFFECTIVE [None]
  - ABDOMINAL DISTENSION [None]
  - ANXIETY [None]
  - NAUSEA [None]
